FAERS Safety Report 8766781 (Version 1)
Quarter: 2012Q4

REPORT INFORMATION
  Report Type: 
  Country: JP (occurrence: JP)
  Receive Date: 20120904
  Receipt Date: 20120904
  Transmission Date: 20130627
  Serious: Yes (Other)
  Sender: FDA-Public Use
  Company Number: JP-PFIZER INC-2012215606

PATIENT
  Age: 84 Year
  Sex: Female

DRUGS (1)
  1. HALCION [Suspect]
     Dosage: UNK
     Route: 048

REACTIONS (2)
  - Dementia [Unknown]
  - Dependence [Unknown]
